FAERS Safety Report 6058969-8 (Version None)
Quarter: 2009Q1

REPORT INFORMATION
  Report Type: 
  Country: None (occurrence: None)
  Receive Date: 20090130
  Receipt Date: 20090126
  Transmission Date: 20090719
  Serious: Yes (Other)
  Sender: FDA-Public Use
  Company Number: A0765074A

PATIENT
  Age: 49 Year
  Sex: Female

DRUGS (5)
  1. ZANTAC [Suspect]
     Indication: DRUG USE FOR UNKNOWN INDICATION
     Dosage: 150MG UNKNOWN
     Route: 048
     Dates: start: 20090101
  2. HYDROCHLOROTHIAZIDE [Concomitant]
  3. NORVASC [Concomitant]
  4. ZOLOFT [Concomitant]
  5. AMITRIPTYLINE HCL [Concomitant]

REACTIONS (4)
  - AGITATION [None]
  - CRYING [None]
  - HALLUCINATION [None]
  - SOLILOQUY [None]
